FAERS Safety Report 15262277 (Version 1)
Quarter: 2018Q3

REPORT INFORMATION
  Report Type: Spontaneous
  Country: CN (occurrence: CN)
  Receive Date: 20180809
  Receipt Date: 20180809
  Transmission Date: 20181010
  Serious: Yes (Hospitalization, Other)
  Sender: FDA-Public Use
  Company Number: CN-GILEAD-2018-0354355

PATIENT
  Age: 44 Year
  Sex: Male

DRUGS (1)
  1. HEPSERA [Suspect]
     Active Substance: ADEFOVIR DIPIVOXIL
     Indication: CHRONIC HEPATITIS B
     Dosage: 10 MG, QD
     Route: 048
     Dates: start: 20140101, end: 20180301

REACTIONS (15)
  - Muscular weakness [Recovering/Resolving]
  - Urine calcium increased [Recovering/Resolving]
  - Osteomalacia [Recovering/Resolving]
  - Intervertebral disc protrusion [Recovering/Resolving]
  - Hypermetabolism [Recovering/Resolving]
  - Fanconi syndrome [Recovering/Resolving]
  - Urine uric acid increased [Recovering/Resolving]
  - Diabetic nephropathy [Recovering/Resolving]
  - Back pain [Not Recovered/Not Resolved]
  - Bone pain [Recovering/Resolving]
  - Osteoporosis [Recovering/Resolving]
  - Blood alkaline phosphatase increased [Recovering/Resolving]
  - Hypouricaemia [Recovering/Resolving]
  - Hypophosphataemia [Recovering/Resolving]
  - Limb discomfort [Recovering/Resolving]

NARRATIVE: CASE EVENT DATE: 201712
